FAERS Safety Report 5809649-2 (Version None)
Quarter: 2008Q3

REPORT INFORMATION
  Report Type: 
  Country: None (occurrence: None)
  Receive Date: 20080711
  Receipt Date: 20080711
  Transmission Date: 20090109
  Serious: Yes (Hospitalization)
  Sender: FDA-Public Use
  Company Number: None

PATIENT
  Sex: Male
  Weight: 79.4 kg

DRUGS (4)
  1. CISPLATIN [Suspect]
     Dosage: 117 MG
  2. ETOPOSIDE [Suspect]
     Dosage: 414 MG
  3. G-CSF (FILGRASTIM,AMGEN) [Suspect]
     Dosage: 4800 MCG
  4. TOPOTECAN [Suspect]
     Dosage: 4.5 MG

REACTIONS (8)
  - ALANINE AMINOTRANSFERASE INCREASED [None]
  - ASPARTATE AMINOTRANSFERASE INCREASED [None]
  - BLOOD ALKALINE PHOSPHATASE INCREASED [None]
  - DISEASE RECURRENCE [None]
  - DRUG INTERACTION [None]
  - FATIGUE [None]
  - HEPATIC ENZYME INCREASED [None]
  - HEPATIC FUNCTION ABNORMAL [None]
